FAERS Safety Report 7262611-8 (Version None)
Quarter: 2011Q1

REPORT INFORMATION
  Report Type: 
  Country: None (occurrence: None)
  Receive Date: 20110130
  Receipt Date: 20101108
  Transmission Date: 20110831
  Serious: No
  Sender: FDA-Public Use
  Company Number: US-ABBOTT-10P-163-0665241-00

PATIENT
  Sex: Female

DRUGS (4)
  1. HUMIRA [Suspect]
     Indication: CROHN'S DISEASE
     Dosage: DAY 1
     Route: 058
     Dates: start: 20100818
  2. MESTINON [Concomitant]
     Indication: MYASTHENIA GRAVIS
     Dosage: 2.5 TABS EVERY FOUR HOURS AND 3 TABS AT BEDTIME
  3. HUMIRA [Suspect]
     Dosage: DAY 29 THEN EOW
  4. HUMIRA [Suspect]
     Dosage: DAY 15
     Route: 058

REACTIONS (9)
  - LYMPHADENOPATHY [None]
  - TENDERNESS [None]
  - INCORRECT ROUTE OF DRUG ADMINISTRATION [None]
  - DIZZINESS [None]
  - OROPHARYNGEAL PAIN [None]
  - THROAT IRRITATION [None]
  - NAUSEA [None]
  - DYSPHAGIA [None]
  - WRONG TECHNIQUE IN DRUG USAGE PROCESS [None]
